FAERS Safety Report 17183024 (Version 1)
Quarter: 2019Q4

REPORT INFORMATION
  Report Type: Spontaneous
  Country: US (occurrence: US)
  Receive Date: 20191219
  Receipt Date: 20191219
  Transmission Date: 20200122
  Serious: No
  Sender: FDA-Public Use
  Company Number: US-COOPERSURGICAL, INC.-US-2019CPS002180

PATIENT
  Sex: Female

DRUGS (1)
  1. PARAGARD T 380A [Suspect]
     Active Substance: COPPER
     Indication: PRODUCT USED FOR UNKNOWN INDICATION
     Dosage: UNK
     Route: 065

REACTIONS (5)
  - Procedural pain [Unknown]
  - Muscle spasms [Not Recovered/Not Resolved]
  - Bacterial infection [Recovered/Resolved]
  - Vaginal odour [Recovered/Resolved]
  - Metrorrhagia [Not Recovered/Not Resolved]
